FAERS Safety Report 7194346-4 (Version None)
Quarter: 2010Q4

REPORT INFORMATION
  Report Type: 
  Country: None (occurrence: None)
  Receive Date: 20101223
  Receipt Date: 20101213
  Transmission Date: 20110411
  Serious: Yes (Death, Other)
  Sender: FDA-Public Use
  Company Number: FR-ELI_LILLY_AND_COMPANY-FR201012000847

PATIENT
  Sex: Male

DRUGS (7)
  1. ZYPREXA [Suspect]
     Indication: SCHIZOPHRENIA
     Dosage: 10 MG, DAILY (1/D)
     Route: 048
     Dates: start: 20090618, end: 20090706
  2. ZYPREXA [Suspect]
     Dosage: 15 MG, DAILY (1/D)
     Route: 048
     Dates: start: 20090707
  3. LYSANXIA [Concomitant]
     Indication: SCHIZOPHRENIA
     Dosage: 80 MG, DAILY (1/D)
     Route: 048
     Dates: start: 20090628, end: 20090720
  4. LYSANXIA [Concomitant]
     Dosage: 40 MG, DAILY (1/D)
     Route: 048
     Dates: start: 20090721
  5. TERCIAN [Concomitant]
     Indication: SCHIZOPHRENIA
     Dosage: 80 MG, DAILY (1/D)
     Route: 048
     Dates: start: 20090708, end: 20090722
  6. TERCIAN [Concomitant]
     Dosage: 40 MG, DAILY (1/D)
     Route: 048
     Dates: start: 20090723
  7. METHADONE [Concomitant]
     Indication: POLYSUBSTANCE DEPENDENCE
     Dosage: UNK, UNK
     Dates: start: 20090721

REACTIONS (4)
  - ABDOMINAL PAIN [None]
  - DEATH [None]
  - PULMONARY OEDEMA [None]
  - VOMITING [None]
